FAERS Safety Report 12758600 (Version 3)
Quarter: 2016Q4

REPORT INFORMATION
  Report Type: Spontaneous
  Country: US (occurrence: US)
  Receive Date: 20160919
  Receipt Date: 20161107
  Transmission Date: 20170207
  Serious: Yes (Other)
  Sender: FDA-Public Use
  Company Number: US-PFIZER INC-2016429814

PATIENT
  Sex: Female
  Weight: 108.8 kg

DRUGS (14)
  1. EYLEA [Suspect]
     Active Substance: AFLIBERCEPT
     Dosage: 2 MG, MONTHLY (RIGHT EYE (OD), 3 INJECTIONS THEN EVERY 2 MONTHS)
     Route: 031
     Dates: start: 20160719
  2. LOSARTAN/HCTZ [Concomitant]
     Active Substance: HYDROCHLOROTHIAZIDE\LOSARTAN
     Dosage: UNK
  3. SPIRIVA [Suspect]
     Active Substance: TIOTROPIUM BROMIDE MONOHYDRATE
     Indication: ASTHMA
     Dosage: UNK, 1X/DAY
  4. GABAPENTIN. [Suspect]
     Active Substance: GABAPENTIN
     Dosage: UNK (2 DOSES)
     Dates: start: 20160703, end: 201607
  5. MONTELUKAST SODIUM. [Suspect]
     Active Substance: MONTELUKAST SODIUM
     Indication: ASTHMA
     Dosage: 10 MG, 1X/DAY (DAILY IN THE EVENING)
  6. FLONASE [Suspect]
     Active Substance: FLUTICASONE PROPIONATE
     Indication: ASTHMA
     Dosage: UNK
     Route: 045
  7. AZELASTINE HCL [Suspect]
     Active Substance: AZELASTINE HYDROCHLORIDE
     Indication: ASTHMA
     Dosage: UNK
     Route: 045
  8. ALBUTEROL. [Suspect]
     Active Substance: ALBUTEROL
     Indication: ASTHMA
     Dosage: 180 UG, AS NEEDED
     Route: 055
  9. ZYRTEC [Suspect]
     Active Substance: CETIRIZINE HYDROCHLORIDE
     Indication: ASTHMA
     Dosage: 10 MG, DAILY
  10. ZETIA [Concomitant]
     Active Substance: EZETIMIBE
     Dosage: UNK
  11. GABAPENTIN. [Suspect]
     Active Substance: GABAPENTIN
     Indication: SPINAL COLUMN STENOSIS
     Dosage: UNK UNK, DAILY
     Dates: start: 201601, end: 201602
  12. SYMBICORT [Suspect]
     Active Substance: BUDESONIDE\FORMOTEROL FUMARATE DIHYDRATE
     Indication: ASTHMA
     Dosage: 2 INHALATIONS, 2X/DAY  [BUDESONIDE: 160MCG]/ [FORMOTEROL FUMARATE: 4.5MCG]
  13. EYLEA [Suspect]
     Active Substance: AFLIBERCEPT
     Indication: AGE-RELATED MACULAR DEGENERATION
     Dosage: 2 MG, MONTHLY (RIGHT EYE (OD), 3 INJECTIONS THEN EVERY 2 MONTHS)
     Route: 031
     Dates: start: 20160524
  14. EYLEA [Suspect]
     Active Substance: AFLIBERCEPT
     Indication: EYE DISORDER
     Dosage: 2 MG, MONTHLY (RIGHT EYE (OD), 3 INJECTIONS THEN EVERY 2 MONTHS)
     Route: 031
     Dates: start: 20160621, end: 20160621

REACTIONS (5)
  - Transient ischaemic attack [Recovered/Resolved]
  - Condition aggravated [Unknown]
  - Eosinophil count increased [Unknown]
  - Asthma [Unknown]
  - Pulmonary function test decreased [Unknown]

NARRATIVE: CASE EVENT DATE: 20160704
